FAERS Safety Report 22113384 (Version 2)
Quarter: 2023Q2

REPORT INFORMATION
  Report Type: Spontaneous
  Country: HU (occurrence: None)
  Receive Date: 20230320
  Receipt Date: 20230622
  Transmission Date: 20230721
  Serious: Yes (Hospitalization, Other)
  Sender: FDA-Public Use
  Company Number: HU-ROCHE-3306372

PATIENT
  Age: 35 Year
  Sex: Female

DRUGS (6)
  1. OCREVUS [Suspect]
     Active Substance: OCRELIZUMAB
     Indication: Relapsing-remitting multiple sclerosis
     Route: 042
  2. CLINDAMYCIN [Concomitant]
     Active Substance: CLINDAMYCIN
  3. PIPERACILLIN [Concomitant]
     Active Substance: PIPERACILLIN
  4. VANCOMYCIN [Concomitant]
     Active Substance: VANCOMYCIN
  5. ACYCLOVIR [Concomitant]
     Active Substance: ACYCLOVIR
  6. CEFAZOLIN [Concomitant]
     Active Substance: CEFAZOLIN

REACTIONS (6)
  - Toxic shock syndrome [Unknown]
  - Asthma [Unknown]
  - Pyrexia [Unknown]
  - Genital swelling [Unknown]
  - Folliculitis [Unknown]
  - Agranulocytosis [Unknown]

NARRATIVE: CASE EVENT DATE: 20221101
